FAERS Safety Report 10211042 (Version 4)
Quarter: 2014Q3

REPORT INFORMATION
  Report Type: Spontaneous
  Country: JP (occurrence: JP)
  Receive Date: 20140602
  Receipt Date: 20140807
  Transmission Date: 20150326
  Serious: Yes (Death, Other)
  Sender: FDA-Public Use
  Company Number: JP-BRISTOL-MYERS SQUIBB COMPANY-20891859

PATIENT
  Age: 77 Year
  Sex: Male

DRUGS (9)
  1. SOLU-CORTEF [Concomitant]
     Active Substance: HYDROCORTISONE SODIUM SUCCINATE
  2. WARFARIN POTASSIUM [Concomitant]
     Active Substance: WARFARIN POTASSIUM
  3. DUTASTERIDE [Concomitant]
     Active Substance: DUTASTERIDE
  4. ABILIFY [Suspect]
     Active Substance: ARIPIPRAZOLE
     Indication: DELIRIUM
     Dosage: 12MG.?18MG: 15MAY2014-19MAY2014
     Route: 048
     Dates: start: 20140512, end: 20140519
  5. PANALDINE [Concomitant]
     Active Substance: TICLOPIDINE HYDROCHLORIDE
  6. VANCOMYCIN HCL [Concomitant]
     Active Substance: VANCOMYCIN HYDROCHLORIDE
  7. ALBUMIN [Concomitant]
     Active Substance: ALBUMIN (HUMAN)
  8. ADETPHOS [Concomitant]
     Active Substance: ADENOSINE TRIPHOSPHATE
  9. TAKEPRON [Concomitant]
     Active Substance: LANSOPRAZOLE

REACTIONS (6)
  - Disseminated intravascular coagulation [Fatal]
  - Altered state of consciousness [Unknown]
  - Pyrexia [Unknown]
  - Somnolence [Unknown]
  - Off label use [Unknown]
  - Agitation [Unknown]

NARRATIVE: CASE EVENT DATE: 20140516
